FAERS Safety Report 9297499 (Version 1)
Quarter: 2013Q2

REPORT INFORMATION
  Report Type: Spontaneous
  Country: US (occurrence: None)
  Receive Date: 20130517
  Receipt Date: 20130517
  Transmission Date: 20140414
  Serious: No
  Sender: FDA-Public Use
  Company Number: None

PATIENT
  Age: 62 Year
  Sex: Male

DRUGS (1)
  1. STRIBID [Suspect]
     Indication: HIV INFECTION
     Route: 048
     Dates: start: 20121115, end: 20130516

REACTIONS (3)
  - Pollakiuria [None]
  - Dehydration [None]
  - Diabetes insipidus [None]
